FAERS Safety Report 9220571 (Version 2)
Quarter: 2013Q2

REPORT INFORMATION
  Report Type: Spontaneous
  Country: CA (occurrence: CA)
  Receive Date: 20130409
  Receipt Date: 20130420
  Transmission Date: 20140414
  Serious: Yes (Hospitalization, Other)
  Sender: FDA-Public Use
  Company Number: CA-B.I. PHARMACEUTICALS,INC./RIDGEFIELD-2013-CN-00523CN

PATIENT
  Age: 81 Year
  Sex: Female

DRUGS (3)
  1. PRADAXA [Suspect]
     Indication: ATRIAL FIBRILLATION
     Dosage: 220 MG
     Dates: start: 2012, end: 201304
  2. RAMIPRIL [Concomitant]
     Dosage: 2.5 MG
  3. LEVOTHYROXINE [Concomitant]

REACTIONS (1)
  - Deep vein thrombosis [Recovered/Resolved]
